FAERS Safety Report 13561676 (Version 1)
Quarter: 2017Q2

REPORT INFORMATION
  Report Type: Spontaneous
  Country: US (occurrence: US)
  Receive Date: 20170518
  Receipt Date: 20170518
  Transmission Date: 20170830
  Serious: No
  Sender: FDA-Public Use
  Company Number: US-TAKEDA-2017TUS010511

PATIENT

DRUGS (1)
  1. ACTOS [Suspect]
     Active Substance: PIOGLITAZONE HYDROCHLORIDE
     Indication: PRODUCT USED FOR UNKNOWN INDICATION
     Dosage: UNK
     Route: 065
     Dates: end: 201701

REACTIONS (5)
  - Pain [Unknown]
  - Peripheral swelling [Unknown]
  - Diarrhoea [Unknown]
  - Weight increased [Unknown]
  - Fluid retention [Unknown]
